FAERS Safety Report 8443741-1 (Version None)
Quarter: 2012Q2

REPORT INFORMATION
  Report Type: 
  Country: None (occurrence: None)
  Receive Date: 20120618
  Receipt Date: 20120606
  Transmission Date: 20120825
  Serious: Yes (Hospitalization)
  Sender: FDA-Public Use
  Company Number: FR-ELI_LILLY_AND_COMPANY-FR201206002288

PATIENT
  Age: 48 Year
  Sex: Female

DRUGS (3)
  1. OLANZAPINE [Suspect]
     Indication: SCHIZOPHRENIA
     Dosage: 405MG Q 4 WKS
     Route: 030
     Dates: start: 20110101
  2. ZYPREXA [Suspect]
     Dosage: 5 MG, QD
     Route: 048
     Dates: start: 20110101
  3. ZYPREXA [Suspect]
     Indication: SCHIZOPHRENIA
     Dosage: 20 MG, QD

REACTIONS (5)
  - CONFUSIONAL STATE [None]
  - HEART RATE INCREASED [None]
  - HYPERHIDROSIS [None]
  - SEDATION [None]
  - COMA [None]
